FAERS Safety Report 12091497 (Version 25)
Quarter: 2020Q1

REPORT INFORMATION
  Report Type: Spontaneous
  Country: CA (occurrence: CA)
  Receive Date: 20160218
  Receipt Date: 20200316
  Transmission Date: 20200409
  Serious: Yes (Other)
  Sender: FDA-Public Use
  Company Number: CA-PFIZER INC-2016085227

PATIENT
  Age: 65 Year
  Sex: Female

DRUGS (57)
  1. METHOTREXATE SODIUM. [Suspect]
     Active Substance: METHOTREXATE SODIUM
     Indication: RHEUMATOID ARTHRITIS
     Dosage: 25 MG, UNK (25 MILLIGRAM)
     Route: 058
  2. METHOTREXATE SODIUM. [Suspect]
     Active Substance: METHOTREXATE SODIUM
     Dosage: 25 MG, WEEKLY (25 MILLIGRAM, QWK)
     Route: 058
  3. PLAQUENIL [Suspect]
     Active Substance: HYDROXYCHLOROQUINE SULFATE
     Dosage: 200 MG, 2X/DAY (200 MILLIGRAM, BID)
     Route: 048
  4. AZATHIOPRINE. [Suspect]
     Active Substance: AZATHIOPRINE
     Dosage: 100 MG, UNK (100 MILLIGRAM)
     Route: 065
  5. ARAVA [Suspect]
     Active Substance: LEFLUNOMIDE
     Dosage: UNK
     Route: 065
  6. AMOXIL [Concomitant]
     Active Substance: AMOXICILLIN
     Dosage: UNK
  7. XELJANZ [Suspect]
     Active Substance: TOFACITINIB CITRATE
     Indication: RHEUMATOID ARTHRITIS
     Dosage: 5 MG, 2X/DAY (5 MILLIGRAM, BID)
     Route: 048
  8. METHOTREXATE SODIUM. [Suspect]
     Active Substance: METHOTREXATE SODIUM
     Dosage: 25 MG, UNK (25 MILLIGRAM)
     Route: 058
  9. RITUXAN [Suspect]
     Active Substance: RITUXIMAB
     Dosage: UNK
     Route: 042
  10. APO-HYDROXYQUINE [Suspect]
     Active Substance: HYDROXYCHLOROQUINE SULFATE
     Dosage: UNK
  11. RISEDRONATE [Concomitant]
     Active Substance: RISEDRONATE SODIUM
     Dosage: 35 MG, QWK
     Route: 048
  12. ENBREL [Suspect]
     Active Substance: ETANERCEPT
     Dosage: UNK
     Route: 065
  13. RITUXAN [Suspect]
     Active Substance: RITUXIMAB
     Dosage: UNK
     Route: 065
  14. MINOCYCLINE [Suspect]
     Active Substance: MINOCYCLINE HYDROCHLORIDE
     Dosage: 50 MG, UNK
  15. LEFLUNOMIDE. [Concomitant]
     Active Substance: LEFLUNOMIDE
     Dosage: UNK
     Route: 065
  16. GOLD [Concomitant]
     Active Substance: GOLD
     Dosage: UNK
     Route: 065
  17. BCG VACCINE [Concomitant]
     Active Substance: BCG VACCINE
     Dosage: UNK (POWDER FOR SOLUTION FOR INTRAVESICAL USE)
     Route: 042
  18. HYDROXYCHLOROQUINE [Concomitant]
     Active Substance: HYDROXYCHLOROQUINE
     Dosage: 400 MILLIGRAM
     Route: 065
  19. HYDROXYCHLOROQUINE [Concomitant]
     Active Substance: HYDROXYCHLOROQUINE
     Dosage: 100 MG, UNK
     Route: 065
  20. PLAQUENIL [Suspect]
     Active Substance: HYDROXYCHLOROQUINE SULFATE
     Indication: RHEUMATOID ARTHRITIS
     Dosage: 400 MG, TAKEN FOR 2 YEARS
     Route: 065
  21. HUMIRA [Suspect]
     Active Substance: ADALIMUMAB
     Dosage: UNK
     Route: 058
  22. RITUXAN [Suspect]
     Active Substance: RITUXIMAB
     Indication: RHEUMATOID ARTHRITIS
     Dosage: UNK
     Route: 042
  23. APO-AZATHIOPRINE [Suspect]
     Active Substance: AZATHIOPRINE
     Dosage: UNK
  24. MINOCYCLINE HYDROCHLORIDE. [Suspect]
     Active Substance: MINOCYCLINE HYDROCHLORIDE
     Indication: RHEUMATOID ARTHRITIS
     Dosage: 50 MG, UNK (50 MILLIGRAM)
     Route: 065
     Dates: start: 2006
  25. MINOCYCLINE HYDROCHLORIDE. [Suspect]
     Active Substance: MINOCYCLINE HYDROCHLORIDE
     Dosage: UNK
  26. ARAVA [Suspect]
     Active Substance: LEFLUNOMIDE
     Dosage: UNK
     Route: 048
  27. HYDROXYCHLOROQUINE SULFATE. [Suspect]
     Active Substance: HYDROXYCHLOROQUINE SULFATE
     Dosage: 400 MG, UNK (400 MILLIGRAM)
     Route: 048
  28. LEFLUNOMIDE. [Concomitant]
     Active Substance: LEFLUNOMIDE
     Indication: RHEUMATOID ARTHRITIS
     Dosage: 20 UNK, UNK
     Route: 065
  29. AMOXIL [Concomitant]
     Active Substance: AMOXICILLIN
     Dosage: UNK
     Route: 065
  30. SULFASALAZINE. [Suspect]
     Active Substance: SULFASALAZINE
     Dosage: UNK
     Route: 065
  31. METHOTREXATE SODIUM. [Suspect]
     Active Substance: METHOTREXATE SODIUM
     Dosage: UNK
     Route: 065
  32. HUMIRA [Suspect]
     Active Substance: ADALIMUMAB
     Dosage: 400 MG, UNK (400 MILLIGRAM)
     Route: 058
  33. RITUXIMAB. [Suspect]
     Active Substance: RITUXIMAB
     Dosage: UNK
     Route: 042
  34. ARAVA [Suspect]
     Active Substance: LEFLUNOMIDE
     Indication: RHEUMATOID ARTHRITIS
     Dosage: 20 MG, WEEKLY (20 MILLIGRAM, QWK)
     Route: 048
  35. AMOXICILLIN TRIHYDRATE AND CLAVULANATE POTASS [Concomitant]
     Active Substance: AMOXICILLIN\CLAVULANATE POTASSIUM
     Dosage: UNK
     Route: 065
  36. XELJANZ [Suspect]
     Active Substance: TOFACITINIB CITRATE
     Dosage: 5 NG, 2X/DAY (5 NANOGRAM, BID)
  37. HUMIRA [Suspect]
     Active Substance: ADALIMUMAB
     Indication: RHEUMATOID ARTHRITIS
     Dosage: UNK
     Route: 058
  38. HUMIRA [Suspect]
     Active Substance: ADALIMUMAB
     Dosage: 40 MG, 2X/WEEK (40 MILLIGRAM, Q2WK)
  39. APO-AZATHIOPRINE [Suspect]
     Active Substance: AZATHIOPRINE
     Indication: RHEUMATOID ARTHRITIS
     Dosage: 100 MG, UNK (100 MILLIGRAM)
  40. MINOCYCLINE [Suspect]
     Active Substance: MINOCYCLINE HYDROCHLORIDE
     Dosage: UNK
  41. HYDROXYCHLOROQUINE SULFATE. [Suspect]
     Active Substance: HYDROXYCHLOROQUINE SULFATE
     Dosage: 400 UNK
  42. CLAVULIN [Concomitant]
     Active Substance: AMOXICILLIN\CLAVULANATE POTASSIUM
     Dosage: UNK
  43. ENBREL [Suspect]
     Active Substance: ETANERCEPT
     Dosage: 50 MG, WEEKLY (50 MILLIGRAM, QWK)
     Route: 058
  44. ENBREL [Suspect]
     Active Substance: ETANERCEPT
     Dosage: UNK
     Route: 058
  45. ARAVA [Suspect]
     Active Substance: LEFLUNOMIDE
     Dosage: 20 MG, 1X/DAY (20 MILLIGRAM, QD)
     Route: 048
  46. ORENCIA [Suspect]
     Active Substance: ABATACEPT
     Indication: RHEUMATOID ARTHRITIS
     Dosage: UNK, MONTHLY (QMO)
  47. BCG VACCINE [Concomitant]
     Active Substance: BCG VACCINE
     Dosage: UNK (POWDER FOR SOLUTION FOR INTRAVESICAL USE)
     Route: 042
  48. AMOXICILLIN. [Concomitant]
     Active Substance: AMOXICILLIN
     Dosage: UNK
  49. ENBREL [Suspect]
     Active Substance: ETANERCEPT
     Indication: RHEUMATOID ARTHRITIS
     Dosage: UNK
     Route: 058
  50. XELJANZ [Suspect]
     Active Substance: TOFACITINIB CITRATE
     Dosage: 5 MG, 2X/DAY (5 MILLIGRAM, BID)
  51. SULFASALAZINE. [Suspect]
     Active Substance: SULFASALAZINE
     Indication: RHEUMATOID ARTHRITIS
     Dosage: TAKEN FOR 2 YEARS
  52. SULFASALAZINE. [Suspect]
     Active Substance: SULFASALAZINE
     Dosage: 500 MG, 1X/DAY (500 MILLIGRAM, QD)
     Route: 048
  53. HUMIRA [Suspect]
     Active Substance: ADALIMUMAB
     Dosage: 40 MG, UNK (40 MILLIGRAM)
  54. HYDROXYCHLOROQUINE SULFATE. [Suspect]
     Active Substance: HYDROXYCHLOROQUINE SULFATE
     Dosage: UNK
  55. BCG VACCINE [Concomitant]
     Active Substance: BCG VACCINE
     Dosage: UNK (POWDER FOR SOLUTION FOR INTRAVESICAL USE)
     Route: 065
  56. ADALIMUMAB [Concomitant]
     Active Substance: ADALIMUMAB
     Dosage: UNK
  57. HYDROXYCHLOROQUINE [Concomitant]
     Active Substance: HYDROXYCHLOROQUINE
     Indication: RHEUMATOID ARTHRITIS
     Dosage: 400 MILLIGRAM
     Route: 058

REACTIONS (7)
  - Drug intolerance [Unknown]
  - Rheumatoid arthritis [Unknown]
  - Non-Hodgkin^s lymphoma [Unknown]
  - Arthralgia [Unknown]
  - Drug ineffective [Unknown]
  - Joint swelling [Unknown]
  - Product use issue [Unknown]
